FAERS Safety Report 7783375-5 (Version None)
Quarter: 2011Q3

REPORT INFORMATION
  Report Type: 
  Country: None (occurrence: None)
  Receive Date: 20110926
  Receipt Date: 20110909
  Transmission Date: 20111222
  Serious: Yes (Disabling)
  Sender: FDA-Public Use
  Company Number: 2011SP003013

PATIENT
  Age: 56 Year
  Sex: Female

DRUGS (2)
  1. ANTIBIOTICS [Concomitant]
  2. OMNARIS [Suspect]
     Indication: SINUSITIS
     Dosage: 200 UG; QD; NASAL
     Route: 045
     Dates: start: 20101101

REACTIONS (3)
  - OFF LABEL USE [None]
  - OLFACTORY NERVE DISORDER [None]
  - ANOSMIA [None]
